FAERS Safety Report 9305852 (Version 2)
Quarter: 2013Q3

REPORT INFORMATION
  Report Type: Spontaneous
  Country: US (occurrence: US)
  Receive Date: 20130523
  Receipt Date: 20130701
  Transmission Date: 20140515
  Serious: No
  Sender: FDA-Public Use
  Company Number: US-PFIZER INC-2013157196

PATIENT
  Age: 54 Year
  Sex: Female
  Weight: 72.56 kg

DRUGS (9)
  1. LYRICA [Suspect]
     Indication: FIBROMYALGIA
     Dosage: 300 MG, 2X/DAY
     Dates: start: 2008, end: 2013
  2. PRISTIQ [Suspect]
     Indication: DEPRESSION
     Dosage: 50 MG, 2X/DAY
     Dates: start: 2011, end: 2013
  3. LORAZEPAM [Suspect]
     Indication: DEPRESSION
     Dosage: 1 MG, 2X/DAY
  4. LOVAZA [Concomitant]
     Dosage: 4 G, 2X/DAY
  5. URSODIOL [Concomitant]
     Dosage: 300 MG, 3X/DAY
  6. SIMVASTATIN [Concomitant]
     Dosage: 40 MG, 1X/DAY
  7. NIACIN [Concomitant]
     Dosage: 1000 MG, 1X/DAY
  8. LEVOTHYROXINE [Concomitant]
     Dosage: 125 UG, 1X/DAY
  9. OMEPRAZOLE [Concomitant]
     Dosage: 40 MG, UNK

REACTIONS (6)
  - Pain [Unknown]
  - Depression [Unknown]
  - Fatigue [Unknown]
  - Inflammation [Unknown]
  - Burning sensation [Unknown]
  - Local swelling [Unknown]
